FAERS Safety Report 10025541 (Version 1)
Quarter: 2014Q1

REPORT INFORMATION
  Report Type: Spontaneous
  Country: US (occurrence: None)
  Receive Date: 20140304
  Receipt Date: 20140304
  Transmission Date: 20141002
  Serious: Yes (Hospitalization, Other)
  Sender: FDA-Public Use
  Company Number: RB-61738-2013

PATIENT
  Age: 31 Year
  Sex: Female

DRUGS (2)
  1. SUBOXONE [Suspect]
     Indication: DRUG DEPENDENCE
     Dosage: DETAILS UNKNOWN; THE PATIEN WAS PRESCRIBED 16MG DAILY BUT SOMETIMES TOOK MORE SUBLINGUAL)
     Dates: start: 2008
  2. SUBOXONE [Suspect]
     Indication: DRUG DEPENDENCE
     Dosage: SUBOXONE FILM, DOSING DETAILS UNKN; SHE WAS PRESCRIBED 16MG DAILY SOMETIMES TOOK MORE SUBLINGUAL)

REACTIONS (3)
  - Depression [None]
  - Anxiety [None]
  - Incorrect dose administered [None]
